FAERS Safety Report 7512737-6 (Version None)
Quarter: 2011Q2

REPORT INFORMATION
  Report Type: 
  Country: None (occurrence: None)
  Receive Date: 20110531
  Receipt Date: 20110517
  Transmission Date: 20111010
  Serious: Yes (Hospitalization)
  Sender: FDA-Public Use
  Company Number: A0785144A

PATIENT
  Age: 72 Year
  Sex: Male
  Weight: 79.1 kg

DRUGS (8)
  1. IMDUR [Concomitant]
  2. FISH OIL [Concomitant]
  3. FLOMAX [Concomitant]
  4. CRESTOR [Concomitant]
  5. AVANDIA [Suspect]
     Dosage: 4MG PER DAY
     Route: 048
     Dates: start: 20050701, end: 20070601
  6. LOPRESSOR [Concomitant]
  7. PLAVIX [Concomitant]
  8. METOPROLOL TARTRATE [Concomitant]

REACTIONS (4)
  - MYOCARDIAL INFARCTION [None]
  - CARDIAC FAILURE CONGESTIVE [None]
  - PULMONARY CONGESTION [None]
  - CARDIAC DISORDER [None]
